FAERS Safety Report 5485874-8 (Version None)
Quarter: 2007Q4

REPORT INFORMATION
  Report Type: 
  Country: None (occurrence: None)
  Receive Date: 20071015
  Receipt Date: 20071002
  Transmission Date: 20080405
  Serious: Yes (Death, Hospitalization)
  Sender: FDA-Public Use
  Company Number: US-ELI_LILLY_AND_COMPANY-US200705003896

PATIENT
  Sex: Male
  Weight: 61.224 kg

DRUGS (2)
  1. CYMBALTA [Suspect]
     Indication: ANXIETY
     Dosage: 60 MG, DAILY (1/D)
     Route: 048
     Dates: start: 20061208
  2. AMBIEN [Concomitant]
     Indication: INSOMNIA
     Dosage: 12.5 MG, AS NEEDED
     Dates: start: 20061201

REACTIONS (1)
  - GUN SHOT WOUND [None]
